FAERS Safety Report 12022917 (Version 1)
Quarter: 2016Q1

REPORT INFORMATION
  Report Type: Report from Study
  Country: US (occurrence: US)
  Receive Date: 20160206
  Receipt Date: 20160206
  Transmission Date: 20160526
  Serious: No
  Sender: FDA-Public Use
  Company Number: US-ABBVIE-15K-163-1474594-00

PATIENT
  Sex: Female

DRUGS (3)
  1. HUMIRA [Suspect]
     Active Substance: ADALIMUMAB
     Dosage: 2 INJECTIONS
     Route: 065
     Dates: start: 20150910, end: 20150910
  2. HUMIRA [Suspect]
     Active Substance: ADALIMUMAB
     Dosage: 1 INJECTION
     Route: 065
     Dates: start: 20150924, end: 20150924
  3. HUMIRA [Suspect]
     Active Substance: ADALIMUMAB
     Indication: CROHN^S DISEASE
     Dosage: 4 INJECTIONS
     Route: 065
     Dates: start: 20150827, end: 20150827

REACTIONS (1)
  - Inappropriate schedule of drug administration [Not Recovered/Not Resolved]

NARRATIVE: CASE EVENT DATE: 2015
